FAERS Safety Report 11581137 (Version 1)
Quarter: 2015Q4

REPORT INFORMATION
  Report Type: Spontaneous
  Country: US (occurrence: US)
  Receive Date: 20151001
  Receipt Date: 20151001
  Transmission Date: 20160304
  Serious: No
  Sender: FDA-Public Use
  Company Number: US-ROCHE-697469

PATIENT
  Age: 60 Year
  Sex: Female

DRUGS (3)
  1. PEGASYS [Suspect]
     Active Substance: PEGINTERFERON ALFA-2A
     Indication: HEPATITIS C
     Dosage: FORM: PRE-FILLED SYRINGE; STRENGTH: 180 UG/ 0.5 ML
     Route: 058
  2. COPEGUS [Suspect]
     Active Substance: RIBAVIRIN
     Dosage: FREQUENCY: 600 MG IN MORNING AND 400 MG IN EVENING
     Route: 048
  3. COPEGUS [Suspect]
     Active Substance: RIBAVIRIN
     Indication: HEPATITIS C
     Dosage: DIVIDED DOSES
     Route: 048

REACTIONS (3)
  - Feeling cold [Unknown]
  - Peripheral coldness [Unknown]
  - Injection site mass [Unknown]

NARRATIVE: CASE EVENT DATE: 20100223
